FAERS Safety Report 25635916 (Version 1)
Quarter: 2025Q3

REPORT INFORMATION
  Report Type: Spontaneous
  Country: GB (occurrence: GB)
  Receive Date: 20250802
  Receipt Date: 20250802
  Transmission Date: 20251020
  Serious: Yes (Hospitalization, Other)
  Sender: AUROBINDO
  Company Number: GB-MHRA-MED-202507230905225700-DTWCF

PATIENT
  Age: 40 Year
  Sex: Female
  Weight: 96 kg

DRUGS (1)
  1. NITROFURANTOIN [Suspect]
     Active Substance: NITROFURANTOIN
     Indication: Adverse drug reaction
     Dosage: 100 MILLIGRAM, TWO TIMES A DAY
     Route: 065
     Dates: start: 20250708

REACTIONS (2)
  - Headache [Recovered/Resolved]
  - Cognitive disorder [Recovering/Resolving]

NARRATIVE: CASE EVENT DATE: 20250708
